FAERS Safety Report 4627529-5 (Version None)
Quarter: 2005Q2

REPORT INFORMATION
  Report Type: 
  Country: None (occurrence: None)
  Receive Date: 20050405
  Receipt Date: 20050324
  Transmission Date: 20051028
  Serious: Yes (Other)
  Sender: FDA-Public Use
  Company Number: US014976

PATIENT
  Age: 43 Year
  Sex: Female
  Weight: 92.9874 kg

DRUGS (7)
  1. PROVIGIL [Suspect]
     Indication: CHRONIC FATIGUE SYNDROME
     Dosage: 200 MG PRN ORAL
     Route: 048
     Dates: start: 20040701
  2. NEURONTIN [Concomitant]
  3. KLONOPIN [Concomitant]
  4. GLUCOPHAGE [Concomitant]
  5. PAXIL [Concomitant]
  6. HALDOL [Concomitant]
  7. SEROQUEL [Concomitant]

REACTIONS (3)
  - CONVULSION [None]
  - STRESS [None]
  - TREATMENT NONCOMPLIANCE [None]
